FAERS Safety Report 5638328-X (Version None)
Quarter: 2008Q1

REPORT INFORMATION
  Report Type: 
  Country: None (occurrence: None)
  Receive Date: 20080226
  Receipt Date: 20080220
  Transmission Date: 20080703
  Serious: Yes (Other)
  Sender: FDA-Public Use
  Company Number: GB-BRISTOL-MYERS SQUIBB COMPANY-14084677

PATIENT
  Age: 23 Year
  Sex: Female

DRUGS (5)
  1. EFAVIRENZ [Interacting]
     Indication: HIV INFECTION
     Dates: start: 20040101
  2. ZIDOVUDINE [Suspect]
     Indication: HIV INFECTION
     Dates: start: 20040101
  3. LAMIVUDINE [Suspect]
     Indication: HIV INFECTION
     Dates: start: 20040101
  4. IMPLANON [Interacting]
     Indication: CONTRACEPTION
  5. BECOTIDE [Concomitant]
     Indication: ASTHMA

REACTIONS (3)
  - DRUG INTERACTION [None]
  - PREGNANCY WITH IMPLANT CONTRACEPTIVE [None]
  - RUPTURED ECTOPIC PREGNANCY [None]
